FAERS Safety Report 6235944-1 (Version None)
Quarter: 2009Q2

REPORT INFORMATION
  Report Type: 
  Country: None (occurrence: None)
  Receive Date: 20090619
  Receipt Date: 20090610
  Transmission Date: 20091009
  Serious: Yes (Hospitalization, Disabling, Other)
  Sender: FDA-Public Use
  Company Number: PHHY2009JP11826

PATIENT
  Sex: Male

DRUGS (6)
  1. TASIGNA [Suspect]
     Indication: CHRONIC MYELOID LEUKAEMIA
     Dosage: 800 MG/DAY
     Route: 048
     Dates: start: 20090316, end: 20090511
  2. LASIX [Suspect]
     Dosage: 80 MG DAILY
     Route: 048
     Dates: start: 20080415
  3. STARASID [Suspect]
     Indication: CHRONIC MYELOID LEUKAEMIA
     Dosage: 300 MG, UNK
     Route: 048
     Dates: start: 20090209
  4. SLOW-K [Concomitant]
     Dosage: 1200 MG, UNK
     Route: 048
     Dates: start: 20080801
  5. ZYLORIC [Concomitant]
     Dosage: 200 MG, UNK
     Route: 048
  6. URSO 250 [Concomitant]
     Dosage: 300 MG, UNK
     Dates: start: 20090224

REACTIONS (9)
  - BLISTER [None]
  - BLOOD ALKALINE PHOSPHATASE INCREASED [None]
  - CHOLELITHIASIS [None]
  - LIVER DISORDER [None]
  - LIVER FUNCTION TEST ABNORMAL [None]
  - MALIGNANT NEOPLASM PROGRESSION [None]
  - RENAL DISORDER [None]
  - WHITE BLOOD CELL COUNT DECREASED [None]
  - WHITE BLOOD CELL COUNT INCREASED [None]
